FAERS Safety Report 5883781-X (Version None)
Quarter: 2008Q3

REPORT INFORMATION
  Report Type: 
  Country: None (occurrence: None)
  Receive Date: 20080915
  Receipt Date: 20080909
  Transmission Date: 20090109
  Serious: Yes (Hospitalization)
  Sender: FDA-Public Use
  Company Number: DE-ABBOTT-08P-062-0475488-00

PATIENT
  Sex: Female

DRUGS (2)
  1. HUMIRA [Suspect]
     Indication: CROHN'S DISEASE
     Route: 058
     Dates: start: 20070401, end: 20080801
  2. METHOTREXATE [Suspect]
     Indication: CROHN'S DISEASE
     Dates: end: 20080801

REACTIONS (2)
  - PYREXIA [None]
  - STOMATITIS [None]
